FAERS Safety Report 24313491 (Version 1)
Quarter: 2024Q3

REPORT INFORMATION
  Report Type: Spontaneous
  Country: GB (occurrence: GB)
  Receive Date: 20240912
  Receipt Date: 20240912
  Transmission Date: 20241017
  Serious: Yes (Other)
  Sender: Haleon PLC
  Company Number: GB-HALEON-2196148

PATIENT
  Age: 36 Year
  Sex: Female
  Weight: 67 kg

DRUGS (6)
  1. TERBINAFINE [Suspect]
     Active Substance: TERBINAFINE
     Indication: Localised infection
     Dates: start: 20240531, end: 20240727
  2. TERBINAFINE [Suspect]
     Active Substance: TERBINAFINE
     Dates: start: 20240628, end: 20240824
  3. DOXYCYCLINE [Concomitant]
     Active Substance: DOXYCYCLINE\DOXYCYCLINE HYCLATE
     Indication: Localised infection
  4. ITRACONAZOLE [Concomitant]
     Active Substance: ITRACONAZOLE
     Indication: Fungal infection
     Dosage: 2 ONCE DAILY FOR 7 DAYS AND REPEAT AFTER THREE WEEKS OFF MEDICATION
     Dates: start: 20240822
  5. Hydrocortisone+Clotrimazole [Concomitant]
     Indication: Product used for unknown indication
     Dates: start: 20240628, end: 20240810
  6. AMOROLFINE [Concomitant]
     Active Substance: AMOROLFINE
     Indication: Localised infection
     Dosage: TIME INTERVAL: AS NECESSARY: 5 ML APPLY TO INFECTED NAILS 1 OR 2 TIMES WEEKLY AS DIRECTED
     Dates: start: 20240726

REACTIONS (1)
  - Ageusia [Recovering/Resolving]
